FAERS Safety Report 4811470-9 (Version None)
Quarter: 2005Q4

REPORT INFORMATION
  Report Type: 
  Country: None (occurrence: None)
  Receive Date: 20051027
  Receipt Date: 20051018
  Transmission Date: 20060501
  Serious: Yes (Hospitalization)
  Sender: FDA-Public Use
  Company Number: FR-ROCHE-421775

PATIENT
  Age: 51 Year
  Sex: Male
  Weight: 90 kg

DRUGS (7)
  1. KYTRIL [Suspect]
     Indication: DRUG USE FOR UNKNOWN INDICATION
     Dosage: FORM REPORTED AS INJECTABLE SOLUTION.
     Route: 042
     Dates: start: 20050913, end: 20050913
  2. POLARAMINE [Suspect]
     Indication: DRUG USE FOR UNKNOWN INDICATION
     Route: 065
  3. ATROPINE [Suspect]
     Indication: PREMEDICATION
     Route: 042
     Dates: start: 20050913, end: 20050913
  4. FLUOROURACIL [Suspect]
     Route: 042
     Dates: start: 20050913, end: 20050915
  5. CAMPTOSAR [Suspect]
     Route: 042
     Dates: start: 20050913, end: 20050913
  6. CALCIUM FOLINATE [Suspect]
     Dosage: FORM REPORTED AS INJECTABLE SOLUTION
     Route: 042
     Dates: start: 20050913, end: 20050913
  7. SOLU-MEDROL [Suspect]
     Indication: PRURITUS
     Route: 042
     Dates: start: 20050913, end: 20050913

REACTIONS (5)
  - HYPERHIDROSIS [None]
  - HYPERTENSION [None]
  - PURPURA [None]
  - SKIN WARM [None]
  - THROMBOCYTOPENIA [None]
